FAERS Safety Report 4860928-5 (Version None)
Quarter: 2005Q4

REPORT INFORMATION
  Report Type: 
  Country: None (occurrence: None)
  Receive Date: 20051216
  Receipt Date: 20051216
  Transmission Date: 20060501
  Serious: Yes (Hospitalization)
  Sender: FDA-Public Use
  Company Number: None

PATIENT
  Age: 66 Year
  Sex: Male
  Weight: 80 kg

DRUGS (2)
  1. DOCETAXEL [Suspect]
     Indication: NON-SMALL CELL LUNG CANCER STAGE IV
     Dosage: 40MG/M2     D1+8  Q21D   IV
     Route: 042
     Dates: start: 20051115, end: 20051206
  2. GEMCITABINE [Suspect]
     Indication: NON-SMALL CELL LUNG CANCER STAGE IV
     Dosage: 1250MG/M2   D1+8  Q21D  IV
     Route: 042
     Dates: start: 20051115, end: 20051205

REACTIONS (1)
  - PYREXIA [None]
